FAERS Safety Report 7056585-2 (Version None)
Quarter: 2010Q4

REPORT INFORMATION
  Report Type: 
  Country: None (occurrence: None)
  Receive Date: 20101021
  Receipt Date: 20101012
  Transmission Date: 20110411
  Serious: Yes (Hospitalization, Disabling, Other)
  Sender: FDA-Public Use
  Company Number: US-MERCK-0612USA03079

PATIENT
  Age: 51 Year
  Sex: Female

DRUGS (9)
  1. FOSAMAX [Suspect]
     Indication: OSTEOPOROSIS PROPHYLAXIS
     Route: 048
     Dates: start: 20010115, end: 20050428
  2. FOSAMAX [Suspect]
     Route: 048
     Dates: start: 20000103
  3. FOSAMAX [Suspect]
     Route: 048
     Dates: start: 20000101, end: 20051201
  4. FOSAMAX [Suspect]
     Route: 048
     Dates: start: 19990101
  5. FOSAMAX [Suspect]
     Indication: OSTEOPENIA
     Route: 048
     Dates: start: 20010115, end: 20050428
  6. FOSAMAX [Suspect]
     Route: 048
     Dates: start: 20000103
  7. FOSAMAX [Suspect]
     Route: 048
     Dates: start: 20000101, end: 20051201
  8. FOSAMAX [Suspect]
     Route: 048
     Dates: start: 19990101
  9. ACTONEL [Suspect]
     Route: 065
     Dates: start: 20050428, end: 20060707

REACTIONS (50)
  - ABDOMINAL ADHESIONS [None]
  - ABDOMINAL PAIN [None]
  - ANORGASMIA [None]
  - ANXIETY [None]
  - APPENDICITIS [None]
  - ASTHMA [None]
  - BENIGN NEOPLASM OF CHOROID [None]
  - BILIARY COLIC [None]
  - BLOOD CHOLESTEROL INCREASED [None]
  - CARDIAC DISORDER [None]
  - CHEST DISCOMFORT [None]
  - CHEST PAIN [None]
  - CHOLECYSTITIS CHRONIC [None]
  - DENTAL CARIES [None]
  - DIARRHOEA [None]
  - DYSKINESIA [None]
  - DYSPHAGIA [None]
  - EYE PAIN [None]
  - FACIAL PAIN [None]
  - GASTRITIS [None]
  - GASTRODUODENITIS [None]
  - HAND FRACTURE [None]
  - HERPES SIMPLEX [None]
  - HYPERSENSITIVITY [None]
  - IRIDOCYCLITIS [None]
  - IRRITABLE BOWEL SYNDROME [None]
  - JAW DISORDER [None]
  - LIMB INJURY [None]
  - MACULAR DEGENERATION [None]
  - MYALGIA [None]
  - MYOSITIS [None]
  - NAUSEA [None]
  - NEPHROLITHIASIS [None]
  - OESOPHAGEAL DISORDER [None]
  - OESOPHAGEAL STENOSIS [None]
  - OESOPHAGITIS [None]
  - OSTEITIS [None]
  - OSTEONECROSIS OF JAW [None]
  - OVERDOSE [None]
  - PAIN [None]
  - POSTERIOR CAPSULE OPACIFICATION [None]
  - RETINAL DETACHMENT [None]
  - RETINAL VASCULITIS [None]
  - SKIN LACERATION [None]
  - SUDDEN VISUAL LOSS [None]
  - TREMOR [None]
  - URINARY TRACT INFECTION [None]
  - VISUAL IMPAIRMENT [None]
  - VITREOUS DEGENERATION [None]
  - VOMITING [None]
